FAERS Safety Report 15180960 (Version 1)
Quarter: 2018Q3

REPORT INFORMATION
  Report Type: Spontaneous
  Country: US (occurrence: US)
  Receive Date: 20180723
  Receipt Date: 20180723
  Transmission Date: 20181010
  Serious: Yes (Other)
  Sender: FDA-Public Use
  Company Number: US-IPCA LABORATORIES LIMITED-IPC-2018-US-001514

PATIENT

DRUGS (5)
  1. WARFARIN SODIUM. [Interacting]
     Active Substance: WARFARIN SODIUM
     Dosage: 20 MG, Q.W
     Route: 065
  2. WARFARIN SODIUM. [Suspect]
     Active Substance: WARFARIN SODIUM
     Indication: PULMONARY EMBOLISM
     Dosage: 40 MG, Q.W
     Route: 065
  3. SALSALATE. [Interacting]
     Active Substance: SALSALATE
     Indication: ARTHRALGIA
  4. DOXYCYCLINE. [Concomitant]
     Active Substance: DOXYCYCLINE
     Indication: PRODUCT USED FOR UNKNOWN INDICATION
     Dosage: 100 MG, BID
     Route: 065
  5. SALSALATE. [Interacting]
     Active Substance: SALSALATE
     Indication: BACK PAIN
     Dosage: 1.5 G, BID
     Route: 065
     Dates: start: 201604

REACTIONS (4)
  - Haemorrhage [Unknown]
  - Contusion [Recovered/Resolved]
  - Drug interaction [Unknown]
  - International normalised ratio increased [Recovered/Resolved]
